FAERS Safety Report 5712037-0 (Version None)
Quarter: 2008Q2

REPORT INFORMATION
  Report Type: 
  Country: None (occurrence: None)
  Receive Date: 20080417
  Receipt Date: 20080402
  Transmission Date: 20081010
  Serious: Yes (Other)
  Sender: FDA-Public Use
  Company Number: DSA_31679_2008

PATIENT
  Age: 65 Year
  Sex: Female

DRUGS (3)
  1. ENALAPRIL MALEATE [Suspect]
     Indication: BLOOD PRESSURE INCREASED
     Dosage: (DF ORAL)
     Route: 048
  2. ISTIN (ISTIN - AMLODPINE BESYLATE) [Suspect]
     Indication: BLOOD PRESSURE INCREASED
     Dosage: (DF), (DF)
  3. RAMIPRIL [Concomitant]

REACTIONS (4)
  - ANXIETY [None]
  - BLOOD PRESSURE INCREASED [None]
  - PANIC DISORDER [None]
  - WITHDRAWAL SYNDROME [None]
